FAERS Safety Report 13852930 (Version 1)
Quarter: 2017Q3

REPORT INFORMATION
  Report Type: Spontaneous
  Country: US (occurrence: US)
  Receive Date: 20170809
  Receipt Date: 20170809
  Transmission Date: 20171127
  Serious: No
  Sender: FDA-Public Use
  Company Number: US-ROCHE-634068

PATIENT
  Age: 80 Year
  Sex: Female

DRUGS (5)
  1. BONIVA [Suspect]
     Active Substance: IBANDRONATE SODIUM
     Indication: OSTEOPOROSIS
     Route: 048
  2. BABY ASA [Concomitant]
     Active Substance: ASPIRIN
     Route: 065
  3. DIVON [Concomitant]
     Dosage: DOSE: 325/25 OD
     Route: 065
  4. LIPITOR [Concomitant]
     Active Substance: ATORVASTATIN CALCIUM
     Route: 065
  5. ACIPHEX [Concomitant]
     Active Substance: RABEPRAZOLE SODIUM
     Route: 065

REACTIONS (4)
  - Wrong technique in product usage process [Unknown]
  - Musculoskeletal pain [Unknown]
  - Renal disorder [Unknown]
  - Back pain [Unknown]

NARRATIVE: CASE EVENT DATE: 200901
